FAERS Safety Report 24621378 (Version 1)
Quarter: 2024Q4

REPORT INFORMATION
  Report Type: Spontaneous
  Country: CN (occurrence: CN)
  Receive Date: 20241114
  Receipt Date: 20241114
  Transmission Date: 20250115
  Serious: Yes (Hospitalization, Other)
  Sender: ORGANON
  Company Number: CN-ORGANON-O2411CHN000790

PATIENT
  Age: 67 Year
  Sex: Female
  Weight: 50 kg

DRUGS (4)
  1. FOSAMAX [Suspect]
     Active Substance: ALENDRONATE SODIUM
     Indication: Osteoporosis postmenopausal
     Dosage: 70 MILLIGRAM, ONCE EVERY WEEK (QW)
     Route: 048
     Dates: start: 20230225, end: 20230506
  2. FOSAMAX [Suspect]
     Active Substance: ALENDRONATE SODIUM
     Dosage: 70 MILLIGRAM, ONCE EVERY WEEK (QW)
     Route: 048
     Dates: start: 20230520, end: 20240120
  3. MINODRONIC ACID [Suspect]
     Active Substance: MINODRONIC ACID
     Indication: Osteoporosis postmenopausal
     Dosage: UNK, ONCE EVERY 4 WEEKS
     Route: 048
     Dates: start: 20230224, end: 20231229
  4. CALCIUM CARBONATE\CHOLECALCIFEROL [Concomitant]
     Active Substance: CALCIUM CARBONATE\CHOLECALCIFEROL
     Dosage: 1 DOSAGE FORM, QD (RENEED), 1 TABLET DAILY (CONTAINING TOTALLY 500 MG OF CALCIUM AND 200 IU OF VITAM

REACTIONS (3)
  - Diabetes mellitus inadequate control [Recovering/Resolving]
  - Embolism venous [Unknown]
  - Vision blurred [Not Recovered/Not Resolved]

NARRATIVE: CASE EVENT DATE: 20240325
